FAERS Safety Report 4700946-0 (Version None)
Quarter: 2005Q2

REPORT INFORMATION
  Report Type: 
  Country: None (occurrence: None)
  Receive Date: 20050628
  Receipt Date: 20050610
  Transmission Date: 20051028
  Serious: Yes (Disabling)
  Sender: FDA-Public Use
  Company Number: 2005UW08982

PATIENT
  Age: 63 Year
  Sex: Male
  Weight: 65.9 kg

DRUGS (13)
  1. CRESTOR [Suspect]
     Indication: HYPERCHOLESTEROLAEMIA
     Route: 048
     Dates: start: 20040901, end: 20041001
  2. LIPITOR [Suspect]
  3. ALTACE [Concomitant]
  4. ASPIRIN [Concomitant]
  5. ALLOPURINOL [Concomitant]
  6. CLONOPIN [Concomitant]
  7. TOPROL-XL [Concomitant]
  8. PROSCAR [Concomitant]
  9. FLOMAX [Concomitant]
  10. NEXIUM [Concomitant]
     Route: 048
  11. FOLATE [Concomitant]
  12. VITAMIN B-12 [Concomitant]
  13. PRAVACHOL [Concomitant]

REACTIONS (4)
  - ABDOMINAL DISTENSION [None]
  - BLADDER DISTENSION [None]
  - LIVER FUNCTION TEST ABNORMAL [None]
  - URINARY RETENTION [None]
